FAERS Safety Report 10890828 (Version 6)
Quarter: 2016Q1

REPORT INFORMATION
  Report Type: Report from Study
  Country: JP (occurrence: JP)
  Receive Date: 20150305
  Receipt Date: 20160303
  Transmission Date: 20160525
  Serious: Yes (Death, Other)
  Sender: FDA-Public Use
  Company Number: JP-BRISTOL-MYERS SQUIBB COMPANY-BMS-2015-014152

PATIENT
  Age: 70 Year
  Sex: Male

DRUGS (3)
  1. NIVOLUMAB [Suspect]
     Active Substance: NIVOLUMAB
     Indication: MALIGNANT MELANOMA
     Dosage: 140 MG, UNK
     Route: 041
     Dates: start: 20141219, end: 20141219
  2. NIVOLUMAB [Suspect]
     Active Substance: NIVOLUMAB
     Dosage: 140 MG, UNK
     Route: 041
     Dates: start: 20150223, end: 20150223
  3. NIVOLUMAB [Suspect]
     Active Substance: NIVOLUMAB
     Dosage: 140 MG, UNK
     Route: 041
     Dates: start: 20150109, end: 20150109

REACTIONS (6)
  - Angina pectoris [Recovered/Resolved]
  - Alanine aminotransferase increased [Not Recovered/Not Resolved]
  - Aspartate aminotransferase increased [Not Recovered/Not Resolved]
  - Blood alkaline phosphatase increased [Not Recovered/Not Resolved]
  - Malignant neoplasm progression [Fatal]
  - Gamma-glutamyltransferase increased [Not Recovered/Not Resolved]

NARRATIVE: CASE EVENT DATE: 20150211
